FAERS Safety Report 8123408-X (Version None)
Quarter: 2012Q1

REPORT INFORMATION
  Report Type: 
  Country: None (occurrence: None)
  Receive Date: 20120208
  Receipt Date: 20120127
  Transmission Date: 20120608
  Serious: Yes (Hospitalization)
  Sender: FDA-Public Use
  Company Number: FR-PFIZER INC-2012031996

PATIENT
  Age: 80 Year
  Sex: Male

DRUGS (9)
  1. LASIX [Suspect]
     Dosage: UNK
     Route: 048
     Dates: end: 20120101
  2. PANTOPRAZOLE [Concomitant]
  3. CORDARONE [Suspect]
     Dosage: 200 MG, DAILY
     Route: 048
     Dates: end: 20120101
  4. POTASSIUM CHLORIDE [Concomitant]
  5. ACETAMINOPHEN [Suspect]
     Dosage: UNK
     Route: 048
     Dates: end: 20120101
  6. CANDESARTAN CILEXETIL [Suspect]
     Dosage: UNK
     Route: 048
     Dates: end: 20120101
  7. RISPERDAL [Suspect]
     Dosage: UNK
     Route: 048
     Dates: end: 20120101
  8. PREVISCAN [Concomitant]
  9. LEUPRORELIN ACETATE [Concomitant]

REACTIONS (2)
  - PANCREATITIS ACUTE [None]
  - SEPTIC SHOCK [None]
